FAERS Safety Report 5249053-1 (Version None)
Quarter: 2007Q1

REPORT INFORMATION
  Report Type: 
  Country: None (occurrence: None)
  Receive Date: 20070228
  Receipt Date: 20060622
  Transmission Date: 20070707
  Serious: No
  Sender: FDA-Public Use
  Company Number: US-GLAXOSMITHKLINE-A0610024A

PATIENT
  Age: 34 Year
  Sex: Female

DRUGS (5)
  1. VALTREX [Suspect]
     Route: 048
  2. BIRTH CONTROL PILLS [Concomitant]
  3. VICODIN [Concomitant]
  4. KEFLEX [Concomitant]
  5. PHENERGAN [Concomitant]

REACTIONS (1)
  - RASH [None]
